FAERS Safety Report 15456282 (Version 1)
Quarter: 2018Q4

REPORT INFORMATION
  Report Type: Spontaneous
  Country: US (occurrence: US)
  Receive Date: 20181002
  Receipt Date: 20181002
  Transmission Date: 20190204
  Serious: Yes (Other)
  Sender: FDA-Public Use
  Company Number: PHHY2018US108159

PATIENT
  Age: 42 Year
  Sex: Male

DRUGS (3)
  1. NITROPRUSSIDE [Suspect]
     Active Substance: NITROPRUSSIDE
     Indication: BLOOD PRESSURE ABNORMAL
     Route: 065
  2. METHYLPREDNISOLONE. [Suspect]
     Active Substance: METHYLPREDNISOLONE
     Indication: BEHCET^S SYNDROME
     Dosage: 1000 MG, UNK
     Route: 042
  3. CLEVIDIPINE [Suspect]
     Active Substance: CLEVIDIPINE
     Indication: BLOOD PRESSURE ABNORMAL
     Route: 065

REACTIONS (4)
  - Vasculitis [Recovering/Resolving]
  - Leukocytosis [Recovering/Resolving]
  - Febrile infection [Recovering/Resolving]
  - Product use in unapproved indication [Unknown]
